FAERS Safety Report 9619321 (Version 1)
Quarter: 2013Q4

REPORT INFORMATION
  Report Type: Spontaneous
  Country: US (occurrence: US)
  Receive Date: 20131014
  Receipt Date: 20131014
  Transmission Date: 20140711
  Serious: Yes (Other)
  Sender: FDA-Public Use
  Company Number: US-PFIZER INC-2013292143

PATIENT
  Sex: Male

DRUGS (3)
  1. PHENYTOIN [Suspect]
     Indication: CONVULSION
     Dosage: 5 TO 10 MG PER KILOGRAM PER DAY
  2. ETHOSUXIMIDE [Suspect]
     Indication: CONVULSION
     Dosage: 20 TO 30 MG PER KILOGRAM PER DAY
  3. PHENOBARBITAL [Suspect]
     Indication: CONVULSION
     Dosage: 5 TO 15 MG PER KILOGRAM OF BODY WEIGHT PER DAY

REACTIONS (5)
  - Anticonvulsant drug level increased [Unknown]
  - Ataxia [Unknown]
  - Nystagmus [Unknown]
  - Intention tremor [Unknown]
  - Gait disturbance [Unknown]
